FAERS Safety Report 11273052 (Version 1)
Quarter: 2015Q3

REPORT INFORMATION
  Report Type: Spontaneous
  Country: US (occurrence: None)
  Receive Date: 20150714
  Receipt Date: 20150714
  Transmission Date: 20151125
  Serious: Yes (Death, Hospitalization)
  Sender: FDA-Public Use
  Company Number: None

PATIENT
  Age: 3 Year
  Sex: Female
  Weight: 20.4 kg

DRUGS (5)
  1. DEXAMETHASONE. [Suspect]
     Active Substance: DEXAMETHASONE
     Dosage: 6/20/15 PATIENT RECEIVED D/27 OF DEX AT 1.5 MGA.M.+1.0 MG AT P.M.6/21/15 PARENTS ASKED NO MORE MED TODAY AT D/28, SO DEX HELD PER THEIR REQUEST.
     Dates: end: 20150620
  2. METHOTREXATE [Suspect]
     Active Substance: METHOTREXATE
     Dosage: 6/4/15 PATIENT RECEIVED 12MG ITMTX AT D/8 PER PROTOCOL WHICH WAS TOLERATED WELL.
     Dates: end: 20150604
  3. VINCRISTINE SULFATE. [Suspect]
     Active Substance: VINCRISTINE SULFATE
     Dosage: 6/18/15 PATIENT RECEIVED 4 DOSES FOR VINCRISTINE AT 1.2 MG AT D/1,8,15,22 FOR AT TOTAL 4.8 MG. PATIENT TOLERATED ALL DOSES WELL.
     Dates: end: 20150618
  4. CYTARABINE. [Suspect]
     Active Substance: CYTARABINE
     Dosage: 5/28/2015 70 MG ADMINISTERED IT AT D/0 OF INDUCTION, TOLERATED WELL.
     Dates: end: 20150528
  5. ONCASPAR [Suspect]
     Active Substance: PEGASPARGASE
     Dosage: 5/31/15 PEG 2000 UNITS IN NS INFUSED OVER 2 HRS AT D/4. PATIENT TOLERATED MED WELL. NO AES NOTED.
     Dates: end: 20150531

REACTIONS (9)
  - Lactic acidosis [None]
  - Abdominal pain [None]
  - Sepsis [None]
  - Ascites [None]
  - Colitis [None]
  - Tachycardia [None]
  - Abdominal distension [None]
  - Pyrexia [None]
  - Cardiac arrest [None]

NARRATIVE: CASE EVENT DATE: 20150606
